FAERS Safety Report 24250726 (Version 1)
Quarter: 2024Q3

REPORT INFORMATION
  Report Type: Spontaneous
  Country: US (occurrence: US)
  Receive Date: 20240826
  Receipt Date: 20240826
  Transmission Date: 20241017
  Serious: No
  Sender: MEDEXUS PHARMA
  Company Number: US-MEDEXUS PHARMA, INC.-2023MED00285

PATIENT
  Sex: Female

DRUGS (1)
  1. RASUVO [Suspect]
     Active Substance: METHOTREXATE SODIUM
     Indication: Arthritis
     Dosage: UNK

REACTIONS (6)
  - Accidental exposure to product [Not Recovered/Not Resolved]
  - Incorrect route of product administration [Unknown]
  - Incorrect dose administered [Not Recovered/Not Resolved]
  - Weight increased [Unknown]
  - Device leakage [Not Recovered/Not Resolved]
  - Off label use [Not Recovered/Not Resolved]
